FAERS Safety Report 15498952 (Version 1)
Quarter: 2018Q4

REPORT INFORMATION
  Report Type: Spontaneous
  Country: US (occurrence: US)
  Receive Date: 20181015
  Receipt Date: 20181015
  Transmission Date: 20190205
  Serious: Yes (Other)
  Sender: FDA-Public Use
  Company Number: US-FERRINGPH-2018FE05617

PATIENT

DRUGS (1)
  1. CLENPIQ [Suspect]
     Active Substance: ANHYDROUS CITRIC ACID\MAGNESIUM OXIDE\SODIUM PICOSULFATE
     Indication: BOWEL PREPARATION
     Dosage: UNK
     Route: 065
     Dates: start: 2018

REACTIONS (5)
  - Proctitis [Unknown]
  - Mucosal haemorrhage [Unknown]
  - Irritable bowel syndrome [Unknown]
  - Colitis [Unknown]
  - Imaging procedure artifact [Unknown]

NARRATIVE: CASE EVENT DATE: 2018
